FAERS Safety Report 8593177-8 (Version None)
Quarter: 2012Q3

REPORT INFORMATION
  Report Type: 
  Country: None (occurrence: None)
  Receive Date: 20120814
  Receipt Date: 20120806
  Transmission Date: 20120928
  Serious: Yes (Other)
  Sender: FDA-Public Use
  Company Number: US-PFIZER INC-2012178462

PATIENT
  Sex: Female

DRUGS (3)
  1. LATANOPROST [Suspect]
     Indication: INTRAOCULAR PRESSURE INCREASED
     Dosage: UNK
  2. LATANOPROST [Suspect]
     Dosage: 1 DROP IN EACH EYE, 1X/DAY
  3. LATANOPROST [Suspect]
     Indication: INTRAOCULAR PRESSURE INCREASED
     Dosage: 1 DROP IN EACH EYE, 1X/DAY

REACTIONS (3)
  - FOREIGN BODY SENSATION IN EYES [None]
  - SUPERFICIAL INJURY OF EYE [None]
  - LENS DISORDER [None]
